FAERS Safety Report 5907749-X (Version None)
Quarter: 2008Q3

REPORT INFORMATION
  Report Type: 
  Country: None (occurrence: None)
  Receive Date: 20080929
  Receipt Date: 20080915
  Transmission Date: 20090109
  Serious: Yes (Other)
  Sender: FDA-Public Use
  Company Number: 100#08#2008-04688

PATIENT
  Age: 3 Year
  Sex: Female

DRUGS (7)
  1. METHOTREXATE [Suspect]
     Indication: MEDULLOBLASTOMA
     Dosage: SEE IMAGE
  2. VINCRISTINE [Concomitant]
  3. CISPLATIN [Concomitant]
  4. ETOPOSIDE [Concomitant]
  5. CYCLOPHOSPHAMIDE [Concomitant]
  6. TEMOZOLOMIDE [Concomitant]
  7. GLUCARPIDASE [Concomitant]

REACTIONS (12)
  - ALANINE AMINOTRANSFERASE INCREASED [None]
  - ASCITES [None]
  - BLOOD BILIRUBIN INCREASED [None]
  - BONE MARROW FAILURE [None]
  - DRUG TOXICITY [None]
  - HEPATOMEGALY [None]
  - HEPATOTOXICITY [None]
  - MUCOSAL INFLAMMATION [None]
  - PROTHROMBIN TIME PROLONGED [None]
  - PYREXIA [None]
  - RENAL FAILURE ACUTE [None]
  - VOMITING [None]
